FAERS Safety Report 10079896 (Version 5)
Quarter: 2014Q3

REPORT INFORMATION
  Report Type: Spontaneous
  Country: US (occurrence: US)
  Receive Date: 20140415
  Receipt Date: 20140718
  Transmission Date: 20150326
  Serious: Yes (Other)
  Sender: FDA-Public Use
  Company Number: US-ELI_LILLY_AND_COMPANY-US201404001654

PATIENT
  Sex: Female
  Weight: 107.48 kg

DRUGS (6)
  1. METFORMIN [Concomitant]
     Active Substance: METFORMIN HYDROCHLORIDE
     Dosage: 1000 U, BID
  2. HUMALOG [Suspect]
     Active Substance: INSULIN LISPRO
     Dosage: 48 U, TID
     Route: 058
  3. HUMALOG [Suspect]
     Active Substance: INSULIN LISPRO
     Dosage: UNK, PRN
     Route: 058
  4. HUMALOG [Suspect]
     Active Substance: INSULIN LISPRO
     Dosage: 40 U, TID
     Route: 058
  5. HUMALOG [Suspect]
     Active Substance: INSULIN LISPRO
     Indication: TYPE 2 DIABETES MELLITUS
     Dosage: 45 U, TID
     Route: 058
     Dates: start: 201311
  6. LANTUS [Concomitant]
     Active Substance: INSULIN GLARGINE
     Dosage: 80 U, QD

REACTIONS (15)
  - Malaise [Recovered/Resolved]
  - Somnolence [Unknown]
  - Hypoglycaemia [Unknown]
  - Glycosylated haemoglobin increased [Unknown]
  - Crying [Unknown]
  - Drug ineffective [Unknown]
  - Hunger [Unknown]
  - Blood glucose decreased [Recovered/Resolved]
  - Dizziness [Recovered/Resolved]
  - Stress [Unknown]
  - Blood glucose increased [Recovering/Resolving]
  - Fear [Unknown]
  - Presyncope [Recovered/Resolved]
  - Visual impairment [Unknown]
  - Incorrect product storage [Unknown]
